FAERS Safety Report 5933587-8 (Version None)
Quarter: 2008Q4

REPORT INFORMATION
  Report Type: 
  Country: None (occurrence: None)
  Receive Date: 20081029
  Receipt Date: 20081022
  Transmission Date: 20090506
  Serious: Yes (Death)
  Sender: FDA-Public Use
  Company Number: JP-JNJFOC-20080906665

PATIENT
  Age: 50 Year
  Sex: Male

DRUGS (10)
  1. ITRIZOLE [Suspect]
     Indication: DRUG USE FOR UNKNOWN INDICATION
     Route: 048
  2. CRAVIT [Suspect]
     Indication: DRUG USE FOR UNKNOWN INDICATION
     Route: 065
  3. FLUCONAZOLE [Suspect]
     Indication: DRUG USE FOR UNKNOWN INDICATION
     Route: 065
  4. MEROPEN [Suspect]
     Indication: DRUG USE FOR UNKNOWN INDICATION
     Route: 065
  5. IFOSFAMIDE [Concomitant]
     Route: 065
  6. CEFPIROME SULFATE [Concomitant]
     Route: 065
  7. COTRIM [Concomitant]
     Route: 065
  8. DEXAMETHASONE 4MG TAB [Concomitant]
     Route: 065
  9. METHOTREXATE [Concomitant]
     Route: 065
  10. ELSPAR [Concomitant]
     Route: 065

REACTIONS (5)
  - C-REACTIVE PROTEIN INCREASED [None]
  - HEPATIC FUNCTION ABNORMAL [None]
  - PULMONARY HAEMORRHAGE [None]
  - PYREXIA [None]
  - ZYGOMYCOSIS [None]
